FAERS Safety Report 11080526 (Version 4)
Quarter: 2015Q3

REPORT INFORMATION
  Report Type: Report from Study
  Country: US (occurrence: US)
  Receive Date: 20150501
  Receipt Date: 20150908
  Transmission Date: 20151125
  Serious: Yes (Other)
  Sender: FDA-Public Use
  Company Number: US-AMGEN-USASL2015041234

PATIENT
  Age: 58 Year
  Sex: Female

DRUGS (3)
  1. ENBREL [Suspect]
     Active Substance: ETANERCEPT
     Indication: RHEUMATOID ARTHRITIS
     Dosage: 50 MG, QWK
     Route: 065
     Dates: start: 20141202
  2. ENBREL [Suspect]
     Active Substance: ETANERCEPT
     Dosage: UNK
     Route: 065
  3. METHOTREXATE [Concomitant]
     Active Substance: METHOTREXATE
     Indication: RHEUMATOID ARTHRITIS
     Dosage: UNK

REACTIONS (8)
  - Nodule [Unknown]
  - Chest pain [Unknown]
  - Pituitary tumour [Unknown]
  - Impaired healing [Not Recovered/Not Resolved]
  - Rheumatoid arthritis [Unknown]
  - Lung disorder [Unknown]
  - Deafness [Unknown]
  - Tinnitus [Unknown]

NARRATIVE: CASE EVENT DATE: 2014
